FAERS Safety Report 11423529 (Version 1)
Quarter: 2015Q3

REPORT INFORMATION
  Report Type: Spontaneous
  Country: US (occurrence: None)
  Receive Date: 20150826
  Receipt Date: 20150826
  Transmission Date: 20151125
  Serious: No
  Sender: FDA-Public Use
  Company Number: None

PATIENT
  Sex: Female

DRUGS (7)
  1. VITAMIN K [Concomitant]
     Active Substance: PHYTONADIONE
  2. VITAMIN E [Concomitant]
     Active Substance: .ALPHA.-TOCOPHEROL
  3. SIMVASTATIN. [Concomitant]
     Active Substance: SIMVASTATIN
  4. VITAMIN D3 [Concomitant]
     Active Substance: CHOLECALCIFEROL
  5. INCRELEX [Suspect]
     Active Substance: MECASERMIN
     Indication: DEVELOPMENTAL DELAY
     Route: 058
     Dates: start: 20150527
  6. ACTIGALL [Concomitant]
     Active Substance: URSODIOL
  7. VITAMIN A [Concomitant]
     Active Substance: VITAMIN A

REACTIONS (1)
  - Injection site bruising [None]
